FAERS Safety Report 9769472 (Version 1)
Quarter: 2013Q4

REPORT INFORMATION
  Report Type: Spontaneous
  Country: IT (occurrence: IT)
  Receive Date: 20131218
  Receipt Date: 20131218
  Transmission Date: 20140711
  Serious: Yes (Hospitalization)
  Sender: FDA-Public Use
  Company Number: IT-JNJFOC-20131207591

PATIENT
  Age: 53 Year
  Sex: Female

DRUGS (2)
  1. HALDOL [Suspect]
     Indication: AGITATION
     Route: 048
     Dates: start: 20131014, end: 20131119
  2. LIBRADIN [Concomitant]
     Indication: PRODUCT USED FOR UNKNOWN INDICATION
     Route: 048

REACTIONS (2)
  - Extrapyramidal disorder [Recovering/Resolving]
  - Psychomotor skills impaired [Recovering/Resolving]
